FAERS Safety Report 7114400-2 (Version None)
Quarter: 2010Q4

REPORT INFORMATION
  Report Type: 
  Country: None (occurrence: None)
  Receive Date: 20101119
  Receipt Date: 20101105
  Transmission Date: 20110411
  Serious: Yes (Hospitalization)
  Sender: FDA-Public Use
  Company Number: AU-ELI_LILLY_AND_COMPANY-AU201011001322

PATIENT
  Age: 31 Year
  Sex: Female

DRUGS (4)
  1. ZYPREXA [Suspect]
     Dosage: 2.5 MG, DAILY (1/D)
     Route: 048
     Dates: start: 20070501
  2. ZYPREXA [Suspect]
     Dates: end: 20101101
  3. ZYPREXA [Suspect]
     Dates: start: 20101104
  4. CONTRACEPTIVES [Concomitant]
     Indication: CONTRACEPTION

REACTIONS (4)
  - DRUG EXPOSURE DURING PREGNANCY [None]
  - INSOMNIA [None]
  - LIVER FUNCTION TEST ABNORMAL [None]
  - PULMONARY EMBOLISM [None]
